FAERS Safety Report 4429661-8 (Version None)
Quarter: 2004Q3

REPORT INFORMATION
  Report Type: 
  Country: None (occurrence: None)
  Receive Date: 20040819
  Receipt Date: 20020905
  Transmission Date: 20050211
  Serious: Yes (Hospitalization, Other)
  Sender: FDA-Public Use
  Company Number: US-MERCK-0209USA00468

PATIENT
  Age: 58 Year
  Sex: Female
  Weight: 64 kg

DRUGS (18)
  1. FOSAMAX [Concomitant]
     Route: 065
     Dates: start: 20000508
  2. AMITRIPTYLINE HYDROCHLORIDE [Concomitant]
     Route: 048
  3. NORVASC [Concomitant]
     Route: 048
  4. WELLBUTRIN SR [Concomitant]
     Route: 048
  5. LAMPRENE [Concomitant]
     Route: 048
  6. DIPHENHYDRAMINE TANNATE [Concomitant]
     Route: 048
  7. DOCUSATE SODIUM [Concomitant]
     Route: 048
  8. PREMARIN [Concomitant]
     Route: 048
  9. ETHAMBUTOL HYDROCHLORIDE [Concomitant]
     Route: 048
  10. ROBAXIN [Concomitant]
     Route: 048
     Dates: start: 20000508
  11. PRILOSEC [Concomitant]
     Route: 065
  12. RIFAMPIN [Concomitant]
     Route: 048
  13. VIOXX [Suspect]
     Indication: RHEUMATOID ARTHRITIS
     Route: 048
     Dates: start: 20000501, end: 20010801
  14. VIOXX [Suspect]
     Route: 048
     Dates: start: 20010801, end: 20010801
  15. VIOXX [Suspect]
     Route: 048
     Dates: start: 20011201
  16. VIOXX [Suspect]
     Indication: PAIN
     Route: 048
     Dates: start: 20000501, end: 20010801
  17. VIOXX [Suspect]
     Route: 048
     Dates: start: 20010801, end: 20010801
  18. VIOXX [Suspect]
     Route: 048
     Dates: start: 20011201

REACTIONS (51)
  - ABDOMINAL PAIN UPPER [None]
  - ACTIVATED PARTIAL THROMBOPLASTIN TIME PROLONGED [None]
  - ANAEMIA [None]
  - ANXIETY [None]
  - ARTERIOSPASM CORONARY [None]
  - BILIARY NEOPLASM [None]
  - BLOOD ALBUMIN DECREASED [None]
  - BRONCHIECTASIS [None]
  - BURSITIS [None]
  - CELLULITIS [None]
  - CHOLELITHIASIS [None]
  - CONSTIPATION [None]
  - CORONARY ARTERY DISEASE [None]
  - CORONARY ARTERY OCCLUSION [None]
  - DEEP VEIN THROMBOSIS [None]
  - DIVERTICULUM [None]
  - DRUG HYPERSENSITIVITY [None]
  - DRUG INEFFECTIVE [None]
  - DUODENITIS [None]
  - DYSURIA [None]
  - EAR PAIN [None]
  - EROSIVE OESOPHAGITIS [None]
  - EXCORIATION [None]
  - FEAR [None]
  - GALLBLADDER DISORDER [None]
  - GASTRITIS HAEMORRHAGIC [None]
  - HEPATITIS [None]
  - HYPOTENSION [None]
  - LIMB DISCOMFORT [None]
  - LUNG NEOPLASM [None]
  - MALNUTRITION [None]
  - MARKEDLY REDUCED DIETARY INTAKE [None]
  - MYCOBACTERIUM AVIUM COMPLEX INFECTION [None]
  - MYOCARDIAL INFARCTION [None]
  - NAUSEA [None]
  - OEDEMA PERIPHERAL [None]
  - OESOPHAGITIS ULCERATIVE [None]
  - OTITIS EXTERNA [None]
  - PRURITUS [None]
  - PRURITUS GENERALISED [None]
  - PULMONARY CALCIFICATION [None]
  - PULMONARY CAVITATION [None]
  - PULMONARY MASS [None]
  - RASH MORBILLIFORM [None]
  - RASH VESICULAR [None]
  - UPPER RESPIRATORY TRACT INFECTION [None]
  - URINARY TRACT INFECTION [None]
  - VITREOUS FLOATERS [None]
  - VOMITING [None]
  - WEIGHT DECREASED [None]
  - WHITE BLOOD CELL COUNT DECREASED [None]
